FAERS Safety Report 7341401-1 (Version None)
Quarter: 2011Q1

REPORT INFORMATION
  Report Type: 
  Country: None (occurrence: None)
  Receive Date: 20110309
  Receipt Date: 20110301
  Transmission Date: 20110831
  Serious: Yes (Disabling, Other)
  Sender: FDA-Public Use
  Company Number: US-MERCK-0805USA00394

PATIENT
  Age: 52 Year
  Sex: Female
  Weight: 54 kg

DRUGS (1)
  1. FOSAMAX [Suspect]
     Indication: OSTEOPOROSIS
     Route: 048
     Dates: start: 20041004, end: 20060301

REACTIONS (21)
  - NEPHROLITHIASIS [None]
  - UTERINE LEIOMYOMA [None]
  - TOOTH DISORDER [None]
  - TEMPOROMANDIBULAR JOINT SYNDROME [None]
  - PULPITIS DENTAL [None]
  - PELVIC PAIN [None]
  - BLOOD CHOLESTEROL INCREASED [None]
  - LEUKOCYTOSIS [None]
  - JAW DISORDER [None]
  - BONE DISORDER [None]
  - HEADACHE [None]
  - APPENDICITIS PERFORATED [None]
  - BONE DENSITY DECREASED [None]
  - PHLEBOLITH [None]
  - LOWER GASTROINTESTINAL HAEMORRHAGE [None]
  - MELANOCYTIC NAEVUS [None]
  - OSTEONECROSIS OF JAW [None]
  - GASTROINTESTINAL ULCER [None]
  - ANAEMIA [None]
  - TOOTH FRACTURE [None]
  - TOOTH ABSCESS [None]
